FAERS Safety Report 4322567-4 (Version None)
Quarter: 2004Q1

REPORT INFORMATION
  Report Type: 
  Country: None (occurrence: None)
  Receive Date: 20040322
  Receipt Date: 20040322
  Transmission Date: 20041129
  Serious: Yes (Other)
  Sender: FDA-Public Use
  Company Number: None

PATIENT
  Age: 90 Year
  Sex: Male
  Weight: 75.5 kg

DRUGS (11)
  1. FOSINOPRIL SODIUM [Suspect]
  2. PREDNISONE [Concomitant]
  3. METOPROLOL SUCCINATE [Concomitant]
  4. FUROSEMIDE [Concomitant]
  5. SUGARLESS (GUAIFENESIN/DM) COUGH SYRUP [Concomitant]
  6. MUPIROCIN [Concomitant]
  7. TERAZOSIN HCL [Concomitant]
  8. HYDROXYPROPYL METHYLCELLULOSE [Concomitant]
  9. ATROPINE [Concomitant]
  10. ACETAMINOPHEN [Concomitant]
  11. PREDNISOLONE ACET [Concomitant]

REACTIONS (1)
  - COUGH [None]
